FAERS Safety Report 4868810-4 (Version None)
Quarter: 2005Q4

REPORT INFORMATION
  Report Type: 
  Country: None (occurrence: None)
  Receive Date: 20051223
  Receipt Date: 20051214
  Transmission Date: 20060501
  Serious: Yes (Disabling, Other)
  Sender: FDA-Public Use
  Company Number: 13093

PATIENT
  Age: 5 Year
  Sex: Female
  Weight: 25 kg

DRUGS (4)
  1. VINCRISTINE [Suspect]
     Indication: ACUTE LYMPHOCYTIC LEUKAEMIA
     Dosage: 1.5 MG/M2 MONTHLY
  2. DEXAMETHASONE TAB [Concomitant]
  3. MERCAPTOPURINE [Concomitant]
  4. METHOTREXATE [Concomitant]

REACTIONS (2)
  - ABASIA [None]
  - DYSSTASIA [None]
